FAERS Safety Report 8821111 (Version 1)
Quarter: 2012Q4

REPORT INFORMATION
  Report Type: 
  Country: FR (occurrence: FR)
  Receive Date: 20121002
  Receipt Date: 20121002
  Transmission Date: 20130627
  Serious: Yes (Hospitalization)
  Sender: FDA-Public Use
  Company Number: FR-GLAXOSMITHKLINE-B0832192A

PATIENT
  Age: 58 Year
  Sex: Female

DRUGS (12)
  1. ONDANSETRON HYDROCHLORIDE [Suspect]
     Indication: NAUSEA
     Dosage: 8MG Single dose
     Route: 042
     Dates: start: 20120308, end: 20120308
  2. ALIMTA [Suspect]
     Indication: LARGE CELL LUNG CANCER RECURRENT
     Route: 042
     Dates: start: 20120308, end: 20120308
  3. CARBOPLATIN [Suspect]
     Indication: LARGE CELL LUNG CANCER RECURRENT
     Route: 042
     Dates: start: 20120308, end: 20120308
  4. SOLUMEDROL(METHYLPREDNISOLONE SODIUM SUCCINATE) INFUSION [Suspect]
     Indication: NAUSEA
     Dosage: 120MG Single dose
     Route: 042
     Dates: start: 20120308, end: 20120308
  5. CARDENSIEL [Concomitant]
     Route: 065
     Dates: start: 2007
  6. PREVISCAN [Concomitant]
     Route: 065
     Dates: start: 2007, end: 20120323
  7. SPECIAFOLDINE [Concomitant]
     Route: 065
     Dates: start: 2007
  8. LIPANTHYL [Concomitant]
     Route: 065
     Dates: start: 2007
  9. NITRIDERM [Concomitant]
     Route: 065
     Dates: start: 2007
  10. LEVOTHYROX [Concomitant]
     Route: 065
     Dates: start: 2007
  11. EUPANTOL [Concomitant]
     Route: 065
     Dates: start: 2007
  12. IMOVANE [Concomitant]
     Route: 065
     Dates: start: 2007

REACTIONS (9)
  - Dermatitis exfoliative [Recovered/Resolved]
  - Rash pustular [Recovered/Resolved]
  - Pyrexia [Recovered/Resolved]
  - Pruritus [Recovered/Resolved]
  - Mucous membrane disorder [Recovered/Resolved]
  - Skin disorder [Recovered/Resolved]
  - Neutropenia [Unknown]
  - Thrombocytopenia [Unknown]
  - Toxic skin eruption [Recovered/Resolved]
